FAERS Safety Report 5883255-6 (Version None)
Quarter: 2008Q3

REPORT INFORMATION
  Report Type: 
  Country: None (occurrence: None)
  Receive Date: 20080910
  Receipt Date: 20080902
  Transmission Date: 20090109
  Serious: Yes (Other)
  Sender: FDA-Public Use
  Company Number: 08H-114-0314838-00

PATIENT
  Age: 12 Year
  Sex: Male
  Weight: 49 kg

DRUGS (6)
  1. PENTOTHAL SODIUM POWDER INJECTION (THIOPENTAL SODIUM INJECTION) (THIOP [Suspect]
     Indication: INDUCTION OF ANAESTHESIA
     Dosage: 5 MG/KG; INTRAVENOUS
     Route: 042
  2. FENTANYL-100 [Suspect]
     Indication: ANAESTHESIA
     Dosage: 3 MCG/KG, INTRAVENOUS; 1 MCG/KG, ONCE, INTRAVENOUS
     Route: 042
  3. FENTANYL-100 [Suspect]
     Indication: INDUCTION OF ANAESTHESIA
     Dosage: 3 MCG/KG, INTRAVENOUS; 1 MCG/KG, ONCE, INTRAVENOUS
     Route: 042
  4. ROCURONIUM BROMIDE [Suspect]
     Indication: ENDOTRACHEAL INTUBATION
     Dosage: 0.6 MG/KG,
  5. 1.5% ISOFLURANE (ISOFLURANE) [Suspect]
     Indication: MAINTENANCE OF ANAESTHESIA
     Dosage: INHALATION
     Route: 055
  6. CEFAZOLIN [Concomitant]

REACTIONS (4)
  - BLOOD PRESSURE INCREASED [None]
  - CRYING [None]
  - HEART RATE INCREASED [None]
  - UNWANTED AWARENESS DURING ANAESTHESIA [None]
